FAERS Safety Report 14426853 (Version 4)
Quarter: 2019Q1

REPORT INFORMATION
  Report Type: Spontaneous
  Country: US (occurrence: US)
  Receive Date: 20180123
  Receipt Date: 20190228
  Transmission Date: 20190417
  Serious: Yes (Hospitalization, Other)
  Sender: FDA-Public Use
  Company Number: US-GLAXOSMITHKLINE-US2018010143

PATIENT
  Age: 46 Year
  Sex: Female

DRUGS (14)
  1. VELETRI [Concomitant]
     Active Substance: EPOPROSTENOL
  2. PRILOSEC [Concomitant]
     Active Substance: OMEPRAZOLE MAGNESIUM
  3. BENLYSTA [Suspect]
     Active Substance: BELIMUMAB
     Indication: SYSTEMIC LUPUS ERYTHEMATOSUS
     Dosage: UNK, CYC
     Route: 042
     Dates: end: 201709
  4. IRON [Concomitant]
     Active Substance: IRON
  5. GABAPENTIN. [Concomitant]
     Active Substance: GABAPENTIN
  6. PREDNISONE. [Concomitant]
     Active Substance: PREDNISONE
  7. TOPAMAX [Concomitant]
     Active Substance: TOPIRAMATE
  8. ZYVOX [Concomitant]
     Active Substance: LINEZOLID
  9. CALCIUM [Concomitant]
     Active Substance: CALCIUM
  10. MAGNESIUM [Concomitant]
     Active Substance: MAGNESIUM
  11. WARFARIN [Concomitant]
     Active Substance: WARFARIN
  12. KEFLEX [Suspect]
     Active Substance: CEPHALEXIN
     Indication: POSTOPERATIVE WOUND INFECTION
     Dosage: UNK
     Route: 048
  13. REVATIO [Concomitant]
     Active Substance: SILDENAFIL CITRATE
  14. SALAGEN [Concomitant]
     Active Substance: PILOCARPINE HYDROCHLORIDE

REACTIONS (10)
  - Platelet count decreased [Unknown]
  - Product dose omission [Unknown]
  - Staphylococcal infection [Not Recovered/Not Resolved]
  - Limb discomfort [Unknown]
  - Erythema [Unknown]
  - Arthritis bacterial [Unknown]
  - Discontinued product administered [Unknown]
  - Joint effusion [Unknown]
  - Musculoskeletal pain [Not Recovered/Not Resolved]
  - Pneumonia [Unknown]

NARRATIVE: CASE EVENT DATE: 201708
